FAERS Safety Report 7091025-9 (Version None)
Quarter: 2010Q4

REPORT INFORMATION
  Report Type: 
  Country: None (occurrence: None)
  Receive Date: 20101109
  Receipt Date: 20101029
  Transmission Date: 20110411
  Serious: Yes (Hospitalization)
  Sender: FDA-Public Use
  Company Number: US-JNJFOC-20100701013

PATIENT
  Sex: Male
  Weight: 53.5 kg

DRUGS (13)
  1. INFLIXIMAB, RECOMBINANT [Suspect]
     Indication: INFLAMMATORY BOWEL DISEASE
     Route: 042
  2. INFLIXIMAB, RECOMBINANT [Suspect]
     Route: 042
  3. INFLIXIMAB, RECOMBINANT [Suspect]
     Route: 042
  4. ONDANSETRON [Concomitant]
  5. RIBOFLAVIN TAB [Concomitant]
  6. ACETAMINOPHEN W/ CODEINE TAB [Concomitant]
  7. GABAPENTIN [Concomitant]
  8. MESALAMINE [Concomitant]
  9. CITRACAL + D [Concomitant]
  10. FISH OIL [Concomitant]
  11. DIVALPROEX SODIUM [Concomitant]
  12. MULTI-VITAMINS [Concomitant]
  13. LACTAID [Concomitant]

REACTIONS (1)
  - MIGRAINE [None]
